FAERS Safety Report 9280486 (Version 1)
Quarter: 2013Q2

REPORT INFORMATION
  Report Type: Spontaneous
  Country: US (occurrence: US)
  Receive Date: 20130509
  Receipt Date: 20130509
  Transmission Date: 20140414
  Serious: Yes (Hospitalization, Other)
  Sender: FDA-Public Use
  Company Number: US-BAYER-2013-057271

PATIENT
  Age: 46 Year
  Sex: Female

DRUGS (10)
  1. YAZ [Suspect]
  2. GIANVI [Suspect]
  3. ALBUTEROL INHALER [Concomitant]
  4. XANAX [Concomitant]
  5. ULTRAM [Concomitant]
  6. NEXIUM [Concomitant]
  7. CELEBREX [Concomitant]
  8. AMBIEN [Concomitant]
  9. REQUIP [Concomitant]
  10. SYMBICORT [Concomitant]

REACTIONS (5)
  - Pulmonary embolism [Recovering/Resolving]
  - Deep vein thrombosis [Recovered/Resolved]
  - Cerebellar infarction [None]
  - Dyspnoea [Recovering/Resolving]
  - Pulmonary infarction [None]
